FAERS Safety Report 7456532-5 (Version None)
Quarter: 2011Q2

REPORT INFORMATION
  Report Type: 
  Country: None (occurrence: None)
  Receive Date: 20110503
  Receipt Date: 20110426
  Transmission Date: 20111010
  Serious: Yes (Hospitalization)
  Sender: FDA-Public Use
  Company Number: JP-PFIZER INC-2010086177

PATIENT
  Age: 74 Year
  Sex: Male
  Weight: 67 kg

DRUGS (2)
  1. THYRADIN-S [Concomitant]
     Dosage: 50 MG, 1X/DAY
     Route: 048
     Dates: start: 20090601
  2. SUNITINIB MALATE [Suspect]
     Indication: RENAL CELL CARCINOMA
     Dosage: 25 MG, 1X/DAY
     Route: 048
     Dates: start: 20090512, end: 20090723

REACTIONS (1)
  - INTESTINAL OBSTRUCTION [None]
